FAERS Safety Report 5347687-7 (Version None)
Quarter: 2007Q2

REPORT INFORMATION
  Report Type: 
  Country: None (occurrence: None)
  Receive Date: 20070508
  Receipt Date: 20061002
  Transmission Date: 20071010
  Serious: Yes (Other)
  Sender: FDA-Public Use
  Company Number: 234393K06USA

PATIENT
  Age: 54 Year
  Sex: Male
  Weight: 94 kg

DRUGS (2)
  1. REBIF [Suspect]
     Indication: MULTIPLE SCLEROSIS
     Dosage: 22 MCG, 3 IN 1 WEEKS; NOT REPORTED
     Dates: start: 20060522, end: 20060601
  2. TRAZODONE HCL [Suspect]
     Dosage: 50 MG, ONCE; ORAL
     Route: 048
     Dates: start: 20060601, end: 20060601

REACTIONS (2)
  - BLOOD BILIRUBIN INCREASED [None]
  - LIVER FUNCTION TEST ABNORMAL [None]
